FAERS Safety Report 23133085 (Version 3)
Quarter: 2025Q2

REPORT INFORMATION
  Report Type: Spontaneous
  Country: HR (occurrence: HR)
  Receive Date: 20231101
  Receipt Date: 20250505
  Transmission Date: 20250717
  Serious: Yes (Life-Threatening, Hospitalization, Other)
  Sender: AUROBINDO
  Company Number: HR-ALKALOID-2023HQ23813

PATIENT
  Age: 61 Year
  Sex: Male

DRUGS (12)
  1. OLANZAPINE [Interacting]
     Active Substance: OLANZAPINE
     Indication: Psychotic disorder
     Route: 065
  2. OLANZAPINE [Interacting]
     Active Substance: OLANZAPINE
     Indication: Substance-induced psychotic disorder
  3. BACLOFEN [Interacting]
     Active Substance: BACLOFEN
     Indication: Quadriparesis
     Route: 037
     Dates: start: 201708
  4. BACLOFEN [Interacting]
     Active Substance: BACLOFEN
     Route: 037
     Dates: start: 201708
  5. DIAZEPAM [Interacting]
     Active Substance: DIAZEPAM
     Indication: Psychotic disorder
     Route: 065
  6. DIAZEPAM [Interacting]
     Active Substance: DIAZEPAM
     Indication: Substance-induced psychotic disorder
  7. HALOPERIDOL [Interacting]
     Active Substance: HALOPERIDOL
     Indication: Psychotic disorder
     Route: 065
  8. HALOPERIDOL [Interacting]
     Active Substance: HALOPERIDOL
     Indication: Substance-induced psychotic disorder
  9. LORAZEPAM [Interacting]
     Active Substance: LORAZEPAM
     Indication: Psychotic disorder
     Route: 065
  10. LORAZEPAM [Interacting]
     Active Substance: LORAZEPAM
     Indication: Substance-induced psychotic disorder
  11. FUROSEMIDE [Interacting]
     Active Substance: FUROSEMIDE
     Indication: Fluid replacement
     Route: 065
  12. NOREPINEPHRINE BITARTRATE [Interacting]
     Active Substance: NOREPINEPHRINE BITARTRATE
     Indication: Product used for unknown indication
     Route: 065

REACTIONS (6)
  - Coma [Recovered/Resolved]
  - Condition aggravated [Recovered/Resolved]
  - Respiratory depression [Recovered/Resolved]
  - Drug interaction [Recovered/Resolved]
  - Haemodynamic instability [Recovered/Resolved]
  - Miosis [Recovered/Resolved]

NARRATIVE: CASE EVENT DATE: 20220501
